FAERS Safety Report 5594307-2 (Version None)
Quarter: 2008Q1

REPORT INFORMATION
  Report Type: 
  Country: None (occurrence: None)
  Receive Date: 20080117
  Receipt Date: 20080114
  Transmission Date: 20080703
  Serious: Yes (Other)
  Sender: FDA-Public Use
  Company Number: DE-BAYER-200810695GPV

PATIENT
  Age: 62 Year
  Sex: Female

DRUGS (1)
  1. MAGNEVIST [Suspect]
     Indication: NUCLEAR MAGNETIC RESONANCE IMAGING
     Dosage: TOTAL DAILY DOSE: 10 ML
     Route: 042
     Dates: start: 20071211, end: 20071211

REACTIONS (4)
  - DERMATITIS ALLERGIC [None]
  - ERYTHEMA [None]
  - EYELID OEDEMA [None]
  - PRURITUS [None]
